FAERS Safety Report 6444606-7 (Version None)
Quarter: 2009Q4

REPORT INFORMATION
  Report Type: 
  Country: None (occurrence: None)
  Receive Date: 20091117
  Receipt Date: 20091117
  Transmission Date: 20100525
  Serious: Yes (Disabling)
  Sender: FDA-Public Use
  Company Number: None

PATIENT
  Age: 66 Year
  Sex: Female
  Weight: 113.3993 kg

DRUGS (4)
  1. LAVAQUIN 500 MG TABLET [Suspect]
     Indication: BLADDER DISORDER
     Dosage: ? ? THIS WAS 01/03-2008 + 09/28/09
     Dates: start: 20080103, end: 20080202
  2. LAVAQUIN 500 MG TABLET [Suspect]
     Indication: EYE OPERATION
     Dosage: ? ? THIS WAS 01/03-2008 + 09/28/09
     Dates: start: 20080103, end: 20080202
  3. LAVAQUIN 500 MG TABLET [Suspect]
     Indication: BLADDER DISORDER
     Dosage: ? ? THIS WAS 01/03-2008 + 09/28/09
     Dates: start: 20090928, end: 20091031
  4. LAVAQUIN 500 MG TABLET [Suspect]
     Indication: EYE OPERATION
     Dosage: ? ? THIS WAS 01/03-2008 + 09/28/09
     Dates: start: 20090928, end: 20091031

REACTIONS (1)
  - TENDON RUPTURE [None]
